FAERS Safety Report 6392088-6 (Version None)
Quarter: 2009Q4

REPORT INFORMATION
  Report Type: 
  Country: None (occurrence: None)
  Receive Date: 20091007
  Receipt Date: 20091001
  Transmission Date: 20100525
  Serious: Yes (Other)
  Sender: FDA-Public Use
  Company Number: JP-MERCK-0904USA04152

PATIENT
  Age: 82 Year
  Sex: Female

DRUGS (9)
  1. FOSAMAX [Suspect]
     Indication: OSTEOPOROSIS
     Route: 048
     Dates: start: 20070721
  2. ALFAROL [Concomitant]
     Indication: OSTEOPOROSIS
     Route: 048
     Dates: start: 20070721
  3. EPAFIEL [Concomitant]
     Route: 048
     Dates: start: 20071001
  4. OPALMON [Concomitant]
     Route: 048
     Dates: start: 20071001
  5. MUCOSTA [Concomitant]
     Route: 048
  6. MOBIC [Concomitant]
     Route: 048
     Dates: start: 20071001
  7. SHAKUYAKU-KANZO-TO [Concomitant]
     Route: 048
     Dates: start: 20080801
  8. CELECOX [Concomitant]
     Route: 065
     Dates: start: 20070721
  9. GOSHA-JINKI-GAN [Concomitant]
     Route: 065
     Dates: start: 20070721

REACTIONS (1)
  - OSTEOMYELITIS [None]
